FAERS Safety Report 8354358-1 (Version None)
Quarter: 2012Q2

REPORT INFORMATION
  Report Type: 
  Country: None (occurrence: None)
  Receive Date: 20120511
  Receipt Date: 20120503
  Transmission Date: 20120825
  Serious: Yes (Other)
  Sender: FDA-Public Use
  Company Number: CA-ASTRAZENECA-2012SE28861

PATIENT
  Age: 60 Year
  Sex: Female

DRUGS (4)
  1. TYLENOL W/ CODEINE [Concomitant]
  2. MULTI-VITAMINS [Concomitant]
  3. GLUCOSAMINE [Concomitant]
  4. CRESTOR [Suspect]
     Indication: BLOOD CHOLESTEROL INCREASED
     Route: 048
     Dates: start: 20100101, end: 20120101

REACTIONS (18)
  - DISCOMFORT [None]
  - WEIGHT INCREASED [None]
  - DYSPEPSIA [None]
  - SUICIDAL IDEATION [None]
  - NECK PAIN [None]
  - ALOPECIA [None]
  - TREMOR [None]
  - DYSPNOEA [None]
  - MUSCULAR WEAKNESS [None]
  - MEMORY IMPAIRMENT [None]
  - MUSCULOSKELETAL DISCOMFORT [None]
  - APATHY [None]
  - INTENTIONAL DRUG MISUSE [None]
  - DEPRESSION [None]
  - INSOMNIA [None]
  - DIZZINESS [None]
  - FOOD INTOLERANCE [None]
  - HEADACHE [None]
